FAERS Safety Report 10974840 (Version 1)
Quarter: 2015Q1

REPORT INFORMATION
  Report Type: Spontaneous
  Country: US (occurrence: None)
  Receive Date: 20150226
  Receipt Date: 20150226
  Transmission Date: 20150721
  Serious: No
  Sender: FDA-Public Use
  Company Number: TPA2010A02449

PATIENT
  Age: 68 Year
  Sex: Male
  Weight: 133.81 kg

DRUGS (7)
  1. HYDROCODONE / APAP (PARACETAMOL, HYDROCODONE) [Concomitant]
  2. LANTUS [Concomitant]
     Active Substance: INSULIN GLARGINE
  3. CARISOPRODOL. [Concomitant]
     Active Substance: CARISOPRODOL
  4. SIMVASTATIN. [Concomitant]
     Active Substance: SIMVASTATIN
  5. HUMALOG REGULAR (INSULIN LISPRO) [Concomitant]
  6. ULORIC [Suspect]
     Active Substance: FEBUXOSTAT
     Indication: GOUT
     Route: 048
     Dates: start: 201003, end: 201004
  7. LEVOTHYROXINE [Concomitant]
     Active Substance: LEVOTHYROXINE

REACTIONS (1)
  - Drug ineffective [None]
